FAERS Safety Report 9435907 (Version 1)
Quarter: 2013Q3

REPORT INFORMATION
  Report Type: Report from Study
  Country: DE (occurrence: DE)
  Receive Date: 20130801
  Receipt Date: 20130801
  Transmission Date: 20140515
  Serious: Yes (Other)
  Sender: FDA-Public Use
  Company Number: DE-B.I. PHARMACEUTICALS,INC./RIDGEFIELD-2013-DE-02023DE

PATIENT
  Age: 22 Year
  Sex: Female

DRUGS (1)
  1. DULCOLAX [Suspect]
     Dosage: 40 ANZ
     Route: 048
     Dates: start: 20130725

REACTIONS (5)
  - Suicide attempt [Unknown]
  - Nausea [Unknown]
  - Diarrhoea [Unknown]
  - Asthenia [Unknown]
  - Hypotension [Unknown]
